FAERS Safety Report 18142307 (Version 1)
Quarter: 2020Q3

REPORT INFORMATION
  Report Type: Report from Study
  Country: US (occurrence: US)
  Receive Date: 20200812
  Receipt Date: 20200812
  Transmission Date: 20201103
  Serious: Yes (Hospitalization)
  Sender: FDA-Public Use
  Company Number: US-EISAI MEDICAL RESEARCH-EC-2020-077692

PATIENT
  Age: 58 Year
  Sex: Female

DRUGS (2)
  1. LENVIMA [Suspect]
     Active Substance: LENVATINIB
     Indication: ENDOMETRIAL CANCER
     Route: 048
     Dates: start: 20200530, end: 202008
  2. AMLODIPINE [Concomitant]
     Active Substance: AMLODIPINE BESYLATE
     Indication: BLOOD PRESSURE INCREASED
     Route: 065
     Dates: start: 2020

REACTIONS (14)
  - Rash erythematous [Unknown]
  - Abdominal pain upper [Recovered/Resolved]
  - Weight increased [Unknown]
  - Blood pressure increased [Unknown]
  - Gallbladder disorder [Unknown]
  - Musculoskeletal pain [Unknown]
  - Depression [Unknown]
  - Headache [Unknown]
  - Constipation [Unknown]
  - Muscular weakness [Unknown]
  - Nocturia [Unknown]
  - Bone pain [Unknown]
  - Arthralgia [Unknown]
  - Insomnia [Unknown]

NARRATIVE: CASE EVENT DATE: 2020
